FAERS Safety Report 11781784 (Version 1)
Quarter: 2015Q4

REPORT INFORMATION
  Report Type: Spontaneous
  Country: US (occurrence: US)
  Receive Date: 20151126
  Receipt Date: 20151126
  Transmission Date: 20160305
  Serious: No
  Sender: FDA-Public Use
  Company Number: US-SA-2014SA157883

PATIENT
  Age: 50 Year
  Sex: Female

DRUGS (4)
  1. RENVELA [Suspect]
     Active Substance: SEVELAMER CARBONATE
     Indication: HYPERPHOSPHATAEMIA
     Dosage: ONE 2.4 G PACKET WITH EACH MEAL
     Route: 048
     Dates: start: 201409
  2. TUMS [Concomitant]
     Active Substance: CALCIUM CARBONATE
  3. RENVELA [Suspect]
     Active Substance: SEVELAMER CARBONATE
     Indication: HYPERPHOSPHATAEMIA
     Dosage: TWO 2.4 G PACKET WITH EACH MEAL
     Route: 048
     Dates: start: 2014
  4. CALCIUM ACETATE. [Concomitant]
     Active Substance: CALCIUM ACETATE

REACTIONS (2)
  - Hyperphosphataemia [Unknown]
  - Treatment noncompliance [Unknown]

NARRATIVE: CASE EVENT DATE: 2014
